FAERS Safety Report 8062088-9 (Version None)
Quarter: 2012Q1

REPORT INFORMATION
  Report Type: 
  Country: None (occurrence: None)
  Receive Date: 20120120
  Receipt Date: 20120120
  Transmission Date: 20120608
  Serious: No
  Sender: FDA-Public Use
  Company Number: None

PATIENT
  Age: 90 Year
  Sex: Female
  Weight: 76.5 kg

DRUGS (1)
  1. SITAGLIPTIN [Suspect]
     Indication: DIABETES MELLITUS
     Dosage: 100 MG EVERY DAY PO
     Route: 048
     Dates: start: 20101231, end: 20110225

REACTIONS (4)
  - RASH PRURITIC [None]
  - URTICARIA [None]
  - DRUG HYPERSENSITIVITY [None]
  - RASH MACULO-PAPULAR [None]
